FAERS Safety Report 7297807-2 (Version None)
Quarter: 2011Q1

REPORT INFORMATION
  Report Type: 
  Country: None (occurrence: None)
  Receive Date: 20110217
  Receipt Date: 20101020
  Transmission Date: 20110831
  Serious: Yes (Other)
  Sender: FDA-Public Use
  Company Number: JP-JNJFOC-20100906160

PATIENT
  Age: 51 Year
  Sex: Male

DRUGS (13)
  1. RISPERDAL CONSTA [Suspect]
     Route: 030
  2. RISPERDAL CONSTA [Suspect]
     Route: 030
  3. BENZALIN [Concomitant]
     Indication: INSOMNIA
     Route: 048
  4. RISPERDAL CONSTA [Suspect]
     Route: 030
  5. RISPERDAL CONSTA [Suspect]
     Route: 030
  6. RISPERDAL CONSTA [Suspect]
     Route: 030
  7. NEOPHAGEN C [Concomitant]
     Route: 048
  8. TASMOLIN [Concomitant]
     Route: 048
  9. RISPERDAL CONSTA [Suspect]
     Indication: SCHIZOPHRENIA
     Route: 030
  10. RISPERDAL CONSTA [Suspect]
     Route: 030
  11. RISPERDAL CONSTA [Suspect]
     Route: 030
  12. RISPERDAL CONSTA [Suspect]
     Route: 030
  13. RISPERDAL CONSTA [Suspect]
     Route: 030

REACTIONS (4)
  - INAPPROPRIATE SCHEDULE OF DRUG ADMINISTRATION [None]
  - BLOOD CREATINE PHOSPHOKINASE INCREASED [None]
  - MUSCLE DISORDER [None]
  - MYALGIA [None]
